FAERS Safety Report 15862335 (Version 1)
Quarter: 2019Q1

REPORT INFORMATION
  Report Type: Spontaneous
  Country: US (occurrence: US)
  Receive Date: 20190124
  Receipt Date: 20190124
  Transmission Date: 20190417
  Serious: Yes (Death, Other)
  Sender: FDA-Public Use
  Company Number: US-TEVA-2019-US-999946

PATIENT
  Age: 83 Year
  Sex: Female

DRUGS (1)
  1. VALSARTAN TABLETS ACTAVIS [Suspect]
     Active Substance: VALSARTAN
     Indication: BLOOD PRESSURE MEASUREMENT
     Dosage: FORM STRENGTH:320
     Dates: start: 2015, end: 2018

REACTIONS (2)
  - Pancreatic carcinoma [Unknown]
  - Recalled product administered [Unknown]
